FAERS Safety Report 13218938 (Version 4)
Quarter: 2017Q3

REPORT INFORMATION
  Report Type: Spontaneous
  Country: KR (occurrence: KR)
  Receive Date: 20170210
  Receipt Date: 20170714
  Transmission Date: 20171127
  Serious: Yes (Hospitalization)
  Sender: FDA-Public Use
  Company Number: KR-009507513-1702KOR004647

PATIENT
  Age: 82 Year
  Sex: Male
  Weight: 52 kg

DRUGS (64)
  1. EMEND (FOSAPREPITANT DIMEGLUMINE) [Suspect]
     Active Substance: FOSAPREPITANT DIMEGLUMINE
     Indication: PROPHYLAXIS OF NAUSEA AND VOMITING
     Dosage: 150 MG, ONCE
     Route: 042
     Dates: start: 20161011, end: 20161011
  2. EMEND (FOSAPREPITANT DIMEGLUMINE) [Suspect]
     Active Substance: FOSAPREPITANT DIMEGLUMINE
     Dosage: 150 MG, ONCE
     Route: 042
     Dates: start: 20161126, end: 20161126
  3. ENDOXAN [Concomitant]
     Active Substance: CYCLOPHOSPHAMIDE
     Dosage: 1150 MG, ONCE (CYCLE 2)
     Route: 042
     Dates: start: 20161102, end: 20161102
  4. MABTHERA [Concomitant]
     Active Substance: RITUXIMAB
     Indication: DIFFUSE LARGE B-CELL LYMPHOMA
     Dosage: 600 MG, ONCE (CYCLE 1)
     Route: 042
     Dates: start: 20161011, end: 20161011
  5. CODAEWON FORTE [Concomitant]
     Indication: PRODUCTIVE COUGH
  6. ENDIS [Concomitant]
     Indication: PRODUCTIVE COUGH
  7. PENIRAMIN [Concomitant]
     Indication: PROPHYLAXIS
     Dosage: 4 MG, ONCE
     Route: 042
     Dates: start: 20161011, end: 20161011
  8. PENIRAMIN [Concomitant]
     Dosage: 4 MG, ONCE
     Route: 042
     Dates: start: 20161102, end: 20161102
  9. PETHIDINE HCL JEIL [Concomitant]
     Dosage: 25 MG, ONCE  (STRENGTH: 25 MG/0.5 ML)
     Route: 030
     Dates: start: 20161003, end: 20161003
  10. TRIDOL (TRAMADOL HYDROCHLORIDE) [Concomitant]
     Indication: PROPHYLAXIS
     Dosage: 50 MG, ONCE (STRENGTH: 50 MG/ML)
     Route: 042
     Dates: start: 20161003, end: 20161003
  11. DENOGAN [Concomitant]
     Active Substance: PROPACETAMOL HYDROCHLORIDE
     Dosage: 1 DF (V), ONCE
     Route: 042
     Dates: start: 20161004, end: 20161004
  12. ATROVENT [Concomitant]
     Active Substance: IPRATROPIUM BROMIDE
     Indication: COUGH
     Dosage: 4 DF (A), QD (ROUTE OF ADMINISTRATION: INHALATION)
     Route: 055
     Dates: start: 20160929, end: 20161004
  13. DUPHALAC [Concomitant]
     Active Substance: LACTULOSE
     Indication: CONSTIPATION
     Dosage: 15 ML, BID
     Route: 048
     Dates: start: 20160930, end: 20161006
  14. MAGO [Concomitant]
     Dosage: 500 MG, TID
     Route: 048
     Dates: start: 20161007, end: 20161010
  15. SYLCON [Concomitant]
     Dosage: 625 MG, TID
     Route: 048
     Dates: start: 20161005
  16. DOXORUBICIN HYDROCHLORIDE. [Concomitant]
     Active Substance: DOXORUBICIN HYDROCHLORIDE
     Indication: DIFFUSE LARGE B-CELL LYMPHOMA
     Dosage: 76 MG, ONCE (CYCLE 1)
     Route: 042
     Dates: start: 20161011, end: 20161011
  17. ENDOXAN [Concomitant]
     Active Substance: CYCLOPHOSPHAMIDE
     Dosage: 1150 MG, ONCE (CYCLE 4)
     Route: 042
     Dates: start: 20161224, end: 20161224
  18. DUPHALAC [Concomitant]
     Active Substance: LACTULOSE
     Dosage: 15 ML, TID
     Route: 048
     Dates: start: 20161104, end: 20161105
  19. IRCODON [Concomitant]
     Active Substance: OXYCODONE HYDROCHLORIDE
     Dosage: 5 MG, QID
     Route: 048
     Dates: start: 20161018, end: 20161125
  20. DOXORUBICIN HYDROCHLORIDE. [Concomitant]
     Active Substance: DOXORUBICIN HYDROCHLORIDE
     Dosage: 76 MG, ONCE (CYCLE 2)
     Route: 042
     Dates: start: 20161102, end: 20161102
  21. MABTHERA [Concomitant]
     Active Substance: RITUXIMAB
     Dosage: 600 MG, ONCE (CYCLE 2)
     Route: 042
     Dates: start: 20161102, end: 20161102
  22. CODAEWON FORTE [Concomitant]
     Indication: COUGH
     Dosage: 1 DF (PK), TID
     Route: 048
     Dates: start: 20161005, end: 20161013
  23. ENDIS [Concomitant]
     Indication: COUGH
     Dosage: 300 MG, BID
     Route: 048
     Dates: start: 201609
  24. MEDILAC-DS [Concomitant]
     Indication: PROPHYLAXIS
     Dosage: 1 CAPSULE, TID
     Route: 048
     Dates: start: 201609, end: 20161018
  25. MAGO [Concomitant]
     Indication: CONSTIPATION
     Dosage: 500 MG, TID
     Route: 048
     Dates: start: 201609, end: 20160930
  26. TARGIN [Concomitant]
     Active Substance: NALOXONE HYDROCHLORIDE\OXYCODONE HYDROCHLORIDE
     Indication: PAIN
     Dosage: 1 TABLET, BID
     Route: 048
     Dates: start: 20161005, end: 20161125
  27. VENTOLIN [Concomitant]
     Active Substance: ALBUTEROL SULFATE
     Dosage: 10 MG, QD ( ROUTE: INHALATION)
     Route: 055
     Dates: start: 20161014, end: 20161018
  28. DOXORUBICIN HYDROCHLORIDE. [Concomitant]
     Active Substance: DOXORUBICIN HYDROCHLORIDE
     Dosage: 76 MG, ONCE (CYCLE 3)
     Route: 042
     Dates: start: 20161126, end: 20161126
  29. MABTHERA [Concomitant]
     Active Substance: RITUXIMAB
     Dosage: 600 MG, ONCE (CYCLE 3)
     Route: 042
     Dates: start: 20161126, end: 20161126
  30. ACTIFED (PSEUDOEPHEDRINE HYDROCHLORIDE (+) TRIPROLIDINE HYDROCHLORIDE) [Concomitant]
     Indication: PROPHYLAXIS
     Dosage: 1 TABLET, BID
     Route: 048
     Dates: start: 20160930, end: 20161002
  31. ATROVENT [Concomitant]
     Active Substance: IPRATROPIUM BROMIDE
     Indication: PRODUCTIVE COUGH
     Dosage: 4 DF (A), QD (ROUTE OF ADMINISTRATION: INHALATION)
     Route: 055
     Dates: start: 20161014, end: 20161017
  32. IRCODON [Concomitant]
     Active Substance: OXYCODONE HYDROCHLORIDE
     Indication: PAIN
     Dosage: 5 MG, QID
     Route: 048
     Dates: start: 20161003, end: 20161003
  33. VENTOLIN [Concomitant]
     Active Substance: ALBUTEROL SULFATE
     Indication: PNEUMONIA
     Dosage: 10 MG, QD ( ROUTE: INHALATION)
     Route: 055
     Dates: start: 20160929, end: 20161004
  34. THEOLAN B SR [Concomitant]
     Indication: COUGH
     Dosage: 200 MG, BID
     Route: 048
     Dates: start: 201609, end: 20161013
  35. EMEND (FOSAPREPITANT DIMEGLUMINE) [Suspect]
     Active Substance: FOSAPREPITANT DIMEGLUMINE
     Dosage: 150 MG, ONCE
     Route: 042
     Dates: start: 20161102, end: 20161102
  36. EMEND (FOSAPREPITANT DIMEGLUMINE) [Suspect]
     Active Substance: FOSAPREPITANT DIMEGLUMINE
     Dosage: 150 MG, ONCE
     Route: 042
     Dates: start: 20161224, end: 20161224
  37. DOXORUBICIN HYDROCHLORIDE. [Concomitant]
     Active Substance: DOXORUBICIN HYDROCHLORIDE
     Dosage: 76 MG, ONCE (CYCLE 4)
     Route: 042
     Dates: start: 20161224, end: 20161224
  38. SOLONDO [Concomitant]
     Active Substance: PREDNISOLONE
     Dosage: 100 MG, TID (MORNING TIME-40MG, LUNCH TIME-30MG, DINNER TIME-30MG)
     Route: 048
     Dates: start: 20161224, end: 20161228
  39. ALOXI [Concomitant]
     Active Substance: PALONOSETRON HYDROCHLORIDE
     Dosage: 0.25 MG, ONCE
     Route: 042
     Dates: start: 20161102, end: 20161102
  40. ACTIFED (PSEUDOEPHEDRINE HYDROCHLORIDE (+) TRIPROLIDINE HYDROCHLORIDE) [Concomitant]
     Dosage: 1 TABLET, BID
     Route: 048
     Dates: start: 20161028
  41. CETIRIN [Concomitant]
     Indication: PROPHYLAXIS
     Dosage: 5 MG, QD
     Route: 048
     Dates: start: 20160930, end: 20161002
  42. DENOGAN [Concomitant]
     Active Substance: PROPACETAMOL HYDROCHLORIDE
     Indication: PAIN
     Dosage: 1 DF (V), ONCE
     Route: 042
     Dates: start: 20161002, end: 20161002
  43. PETHIDINE HCL JEIL [Concomitant]
     Indication: PAIN
     Dosage: 25 MG, ONCE (STRENGTH: 25 MG/0.5 ML)
     Route: 030
     Dates: start: 20160929, end: 20160929
  44. THEOLAN B SR [Concomitant]
     Indication: PRODUCTIVE COUGH
  45. SOLONDO [Concomitant]
     Active Substance: PREDNISOLONE
     Dosage: 100 MG, TID (MORNING TIME-40MG, LUNCH TIME-30MG, DINNER TIME-30MG)
     Route: 048
     Dates: start: 20161102, end: 20161106
  46. SOLONDO [Concomitant]
     Active Substance: PREDNISOLONE
     Dosage: 100 MG, TID (MORNING TIME-40MG, LUNCH TIME-30MG, DINNER TIME-30MG)
     Route: 048
     Dates: start: 20161126, end: 20161130
  47. ALOXI [Concomitant]
     Active Substance: PALONOSETRON HYDROCHLORIDE
     Indication: PREMEDICATION
     Dosage: 0.25 MG, ONCE
     Route: 042
     Dates: start: 20161011, end: 20161011
  48. ALOXI [Concomitant]
     Active Substance: PALONOSETRON HYDROCHLORIDE
     Dosage: 0.25 MG, ONCE
     Route: 042
     Dates: start: 20161126, end: 20161126
  49. ACTIFED (PSEUDOEPHEDRINE HYDROCHLORIDE (+) TRIPROLIDINE HYDROCHLORIDE) [Concomitant]
     Dosage: 1 TABLET, BID
     Route: 048
     Dates: start: 20161003, end: 20161010
  50. ALBIS [Concomitant]
     Active Substance: BISMUTH SUBCITRATE\RANITIDINE HYDROCHLORIDE\SUCRALFATE
     Indication: PROPHYLAXIS
     Dosage: 1 TABLET, BID
     Route: 048
     Dates: start: 20160929, end: 20161010
  51. HEXAMEDINE [Concomitant]
     Indication: MOUTH ULCERATION
     Dosage: 1 BOTTLE (BTL), QD (ROUTE OF ADMINISTRATION: GARGLE)
     Dates: start: 20160930
  52. PENIRAMIN [Concomitant]
     Dosage: 4 MG, ONCE
     Route: 042
     Dates: start: 20161126, end: 20161126
  53. PENIRAMIN [Concomitant]
     Dosage: 4 MG, ONCE
     Route: 042
     Dates: start: 20161224, end: 20161224
  54. TABAXIN [Concomitant]
     Active Substance: PIPERACILLIN SODIUM\TAZOBACTAM SODIUM
     Indication: PNEUMONIA
     Dosage: 4.5 G, TID
     Route: 042
     Dates: start: 20161004, end: 20161017
  55. DUPHALAC [Concomitant]
     Active Substance: LACTULOSE
     Dosage: 10 ML, TID
     Route: 048
     Dates: start: 20161011, end: 20161011
  56. ENDOXAN [Concomitant]
     Active Substance: CYCLOPHOSPHAMIDE
     Indication: DIFFUSE LARGE B-CELL LYMPHOMA
     Dosage: 1150 MG, ONCE (CYCLE 1)
     Route: 042
     Dates: start: 20161011, end: 20161011
  57. ENDOXAN [Concomitant]
     Active Substance: CYCLOPHOSPHAMIDE
     Dosage: 1150 MG, ONCE (CYCLE 3)
     Route: 042
     Dates: start: 20161126, end: 20161126
  58. MABTHERA [Concomitant]
     Active Substance: RITUXIMAB
     Dosage: 600 MG, ONCE (CYCLE 4)
     Route: 042
     Dates: start: 20161224, end: 20161224
  59. SOLONDO [Concomitant]
     Active Substance: PREDNISOLONE
     Indication: PREMEDICATION
     Dosage: 100 MG, TID (MORNING TIME-40MG, LUNCH TIME-30MG, DINNER TIME-30MG)
     Route: 048
     Dates: start: 20161009, end: 20161013
  60. ALOXI [Concomitant]
     Active Substance: PALONOSETRON HYDROCHLORIDE
     Dosage: 0.25 MG, ONCE
     Route: 042
     Dates: start: 20161224, end: 20161224
  61. MEGACE F [Concomitant]
     Indication: DECREASED APPETITE
     Dosage: 1 DF (PK), QD
     Route: 048
     Dates: start: 20161005, end: 20161018
  62. MAGO [Concomitant]
     Dosage: 500 MG, TID
     Route: 048
     Dates: start: 20161016
  63. SYLCON [Concomitant]
     Indication: PROPHYLAXIS
     Dosage: 625 MG, BID
     Route: 048
     Dates: start: 201609, end: 20160930
  64. PANTOLINE TABLETS [Concomitant]
     Indication: PROPHYLAXIS
     Dosage: 20 MG, QD
     Route: 048
     Dates: start: 20161011

REACTIONS (2)
  - Pleural effusion [Recovered/Resolved]
  - Liver function test increased [Recovered/Resolved]

NARRATIVE: CASE EVENT DATE: 20161012
